FAERS Safety Report 8203921-7 (Version None)
Quarter: 2012Q1

REPORT INFORMATION
  Report Type: 
  Country: None (occurrence: None)
  Receive Date: 20120313
  Receipt Date: 20120305
  Transmission Date: 20120608
  Serious: Yes (Hospitalization)
  Sender: FDA-Public Use
  Company Number: US-BAYER-2012-022843

PATIENT
  Age: 34 Year
  Sex: Female

DRUGS (4)
  1. YASMIN [Suspect]
     Dosage: UNK
  2. TOPAMAX [Concomitant]
     Dosage: DAILY DOSE 50 MG
     Dates: start: 20070112, end: 20080229
  3. ACETAMINOPHEN AND HYDROCODONE BITARTRATE [Concomitant]
     Dosage: UNK
     Dates: start: 20070726
  4. AZITHROMYCIN [Concomitant]
     Dosage: DAILY DOSE 250 MG
     Dates: start: 20070726

REACTIONS (1)
  - PULMONARY EMBOLISM [None]
